FAERS Safety Report 8570327-0 (Version None)
Quarter: 2012Q3

REPORT INFORMATION
  Report Type: 
  Country: None (occurrence: None)
  Receive Date: 20120803
  Receipt Date: 20120731
  Transmission Date: 20120928
  Serious: Yes (Death, Hospitalization)
  Sender: FDA-Public Use
  Company Number: US-B.I. PHARMACEUTICALS,INC./RIDGEFIELD-2012-BP-16642BP

PATIENT
  Sex: Male

DRUGS (1)
  1. HYDROXOCOBALAMIN [Suspect]

REACTIONS (1)
  - CEREBRAL HAEMATOMA [None]
